FAERS Safety Report 15250596 (Version 1)
Quarter: 2018Q3

REPORT INFORMATION
  Report Type: Spontaneous
  Country: US (occurrence: US)
  Receive Date: 20180807
  Receipt Date: 20180807
  Transmission Date: 20181010
  Serious: No
  Sender: FDA-Public Use
  Company Number: US-GALDERMA-US17006488

PATIENT
  Sex: Female

DRUGS (3)
  1. DIFFERIN BALANCING MOISTURIZER [Concomitant]
     Indication: ACNE
     Route: 061
  2. DIFFERIN? BALANCING CLEANSER [Concomitant]
     Indication: ACNE
     Route: 061
  3. DIFFERIN GEL [Suspect]
     Active Substance: ADAPALENE
     Indication: ACNE
     Dosage: 0.1%
     Route: 061

REACTIONS (5)
  - Erythema [Recovering/Resolving]
  - Dry skin [Unknown]
  - Skin exfoliation [Unknown]
  - Acne [Recovering/Resolving]
  - Rash papular [Recovering/Resolving]
